FAERS Safety Report 20842204 (Version 1)
Quarter: 2022Q2

REPORT INFORMATION
  Report Type: Spontaneous
  Country: US (occurrence: US)
  Receive Date: 20220518
  Receipt Date: 20220518
  Transmission Date: 20220721
  Serious: No
  Sender: FDA-Public Use
  Company Number: US-BRISTOL-MYERS SQUIBB COMPANY-2022-041056

PATIENT
  Age: 48 Year
  Sex: Male
  Weight: 67.13 kg

DRUGS (1)
  1. ONUREG [Suspect]
     Active Substance: AZACITIDINE
     Indication: Leukaemia
     Route: 048

REACTIONS (1)
  - Laboratory test abnormal [Unknown]
